FAERS Safety Report 12861970 (Version 2)
Quarter: 2021Q2

REPORT INFORMATION
  Report Type: Report from Study
  Country: HU (occurrence: HU)
  Receive Date: 20161019
  Receipt Date: 20210401
  Transmission Date: 20210716
  Serious: Yes (Hospitalization, Other)
  Sender: FDA-Public Use
  Company Number: PHHY2014HU084226

PATIENT
  Age: 37 Year
  Sex: Female
  Weight: 57 kg

DRUGS (1)
  1. GILENYA [Suspect]
     Active Substance: FINGOLIMOD HYDROCHLORIDE
     Indication: RELAPSING-REMITTING MULTIPLE SCLEROSIS
     Dosage: 0.5 MG, QD
     Route: 048
     Dates: start: 20130103, end: 20140707

REACTIONS (13)
  - Central nervous system lesion [Recovered/Resolved]
  - Visual field defect [Recovering/Resolving]
  - Ataxia [Not Recovered/Not Resolved]
  - Multiple sclerosis relapse [Recovered/Resolved]
  - Thrombocytopenia [Unknown]
  - Extensor plantar response [Not Recovered/Not Resolved]
  - Optic neuritis [Recovering/Resolving]
  - Gait spastic [Not Recovered/Not Resolved]
  - Lymphopenia [Unknown]
  - Hemianopia homonymous [Recovered/Resolved]
  - Limb discomfort [Not Recovered/Not Resolved]
  - Somnolence [Unknown]
  - Fatigue [Recovering/Resolving]

NARRATIVE: CASE EVENT DATE: 20130214
